FAERS Safety Report 9834510 (Version 2)
Quarter: 2014Q1

REPORT INFORMATION
  Report Type: Spontaneous
  Country: IL (occurrence: IL)
  Receive Date: 20140122
  Receipt Date: 20140124
  Transmission Date: 20141002
  Serious: Yes (Other)
  Sender: FDA-Public Use
  Company Number: IL-VERTEX PHARMACEUTICALS INC-2014-000285

PATIENT
  Age: 50 Year
  Sex: Male

DRUGS (3)
  1. INCIVO [Suspect]
     Indication: HEPATITIS C
     Route: 048
  2. RIBAVIRIN [Suspect]
     Indication: HEPATITIS C
     Route: 065
  3. PEGINTERFERON ALFA [Suspect]
     Indication: HEPATITIS C
     Route: 065

REACTIONS (2)
  - Weight decreased [Unknown]
  - Anaemia [Recovered/Resolved]
